FAERS Safety Report 8196692-4 (Version None)
Quarter: 2012Q1

REPORT INFORMATION
  Report Type: 
  Country: None (occurrence: None)
  Receive Date: 20120309
  Receipt Date: 20120302
  Transmission Date: 20120608
  Serious: Yes (Hospitalization)
  Sender: FDA-Public Use
  Company Number: US-BAYER-2011-094108

PATIENT
  Age: 29 Year
  Sex: Female
  Weight: 81.633 kg

DRUGS (5)
  1. VICODIN [Concomitant]
     Indication: MIGRAINE
     Dosage: UNK, INFREQUENT USE
     Route: 048
     Dates: start: 20090801, end: 20100701
  2. YAZ [Suspect]
     Dosage: UNK
     Dates: start: 20030101, end: 20090101
  3. IBUPROFEN [Concomitant]
     Dosage: UNK
     Route: 048
     Dates: start: 20091101, end: 20100201
  4. YASMIN [Suspect]
     Dosage: UNK
     Dates: start: 20030101, end: 20090101
  5. ONE-A-DAY [VIT C,B12,D2,B3,B6,RETINOL,B2,B1 MONONITR] [Concomitant]
     Dosage: UNK
     Route: 048
     Dates: start: 20050101

REACTIONS (4)
  - DEEP VEIN THROMBOSIS [None]
  - PULMONARY EMBOLISM [None]
  - PAIN [None]
  - EMOTIONAL DISTRESS [None]
